FAERS Safety Report 9904893 (Version 2)
Quarter: 2014Q1

REPORT INFORMATION
  Report Type: Report from Study
  Country: BE (occurrence: BE)
  Receive Date: 20140218
  Receipt Date: 20140218
  Transmission Date: 20141002
  Serious: Yes (Hospitalization)
  Sender: FDA-Public Use
  Company Number: BE-SA-200619222GDDC

PATIENT
  Age: 54 Year
  Sex: Female

DRUGS (15)
  1. DOCETAXEL [Suspect]
     Indication: BREAST CANCER
     Route: 041
     Dates: start: 20020517, end: 20020517
  2. DOCETAXEL [Suspect]
     Indication: BREAST CANCER
     Route: 041
     Dates: start: 20020719, end: 20020719
  3. TRASTUZUMAB [Suspect]
     Indication: BREAST CANCER
     Route: 041
     Dates: start: 20020516, end: 20020516
  4. TRASTUZUMAB [Suspect]
     Indication: BREAST CANCER
     Route: 041
     Dates: start: 20020712, end: 20020712
  5. TRASTUZUMAB [Suspect]
     Indication: BREAST CANCER
     Route: 041
     Dates: start: 20020809, end: 20020809
  6. TRASTUZUMAB [Suspect]
     Indication: BREAST CANCER
     Route: 041
     Dates: start: 2002, end: 2002
  7. DOXORUBICIN [Suspect]
     Indication: BREAST CANCER
     Route: 042
     Dates: start: 20020222, end: 20020222
  8. DOXORUBICIN [Suspect]
     Indication: BREAST CANCER
     Route: 042
     Dates: start: 20020426, end: 20020426
  9. CYCLOPHOSPHAMIDE [Suspect]
     Indication: BREAST CANCER
     Route: 042
     Dates: start: 20020222, end: 20020222
  10. CYCLOPHOSPHAMIDE [Suspect]
     Indication: BREAST CANCER
     Route: 042
     Dates: start: 20020426, end: 20020426
  11. FONTEX [Concomitant]
     Indication: DEPRESSION
  12. TAMOXIFEN CITRATE [Concomitant]
     Indication: CHEMOTHERAPY
  13. TEMESTA [Concomitant]
     Indication: INSOMNIA
     Dosage: DOSE AS USED: 0.5/ DAY
  14. DURAGESIC [Concomitant]
     Indication: BACK PAIN
  15. AREDIA [Concomitant]
     Dosage: DOSE AS USED: UNK

REACTIONS (5)
  - Cardiomyopathy [Recovered/Resolved]
  - Chest pain [Recovered/Resolved]
  - Nausea [Recovered/Resolved]
  - Vomiting [Recovered/Resolved]
  - Hyperhidrosis [Recovered/Resolved]
